FAERS Safety Report 11344881 (Version 1)
Quarter: 2015Q3

REPORT INFORMATION
  Report Type: Spontaneous
  Country: US (occurrence: US)
  Receive Date: 20150806
  Receipt Date: 20150806
  Transmission Date: 20151125
  Serious: No
  Sender: FDA-Public Use
  Company Number: US-GLAXOSMITHKLINE-US2015GSK096944

PATIENT
  Age: 49 Year
  Sex: Female
  Weight: 77.55 kg

DRUGS (2)
  1. WELLBUTRIN XL [Suspect]
     Active Substance: BUPROPION HYDROCHLORIDE
     Indication: PRODUCT USED FOR UNKNOWN INDICATION
     Dosage: 300 MG, UNK
  2. WELLBUTRIN XL [Suspect]
     Active Substance: BUPROPION HYDROCHLORIDE
     Dosage: 450 MG, UNK
     Dates: start: 201504

REACTIONS (5)
  - Impatience [Unknown]
  - Hyperhidrosis [Unknown]
  - Prescribed overdose [Unknown]
  - Pruritus [Unknown]
  - Memory impairment [Unknown]
